FAERS Safety Report 20069731 (Version 1)
Quarter: 2021Q4

REPORT INFORMATION
  Report Type: Spontaneous
  Country: GB (occurrence: GB)
  Receive Date: 20211115
  Receipt Date: 20211115
  Transmission Date: 20220303
  Serious: Yes (Other)
  Sender: FDA-Public Use
  Company Number: GB-002147023-NVSC2021GB250052

PATIENT
  Sex: Male

DRUGS (2)
  1. BISOPROLOL [Suspect]
     Active Substance: BISOPROLOL
     Indication: Hypertension
     Dosage: 1 DF, QD (TAKING THIS MEDICATION FOR LESS THAN 1 MONTH)
     Route: 065
  2. BISOPROLOL [Suspect]
     Active Substance: BISOPROLOL
     Dosage: 2 DF, QD
     Route: 065

REACTIONS (3)
  - Angina pectoris [Unknown]
  - Incorrect dose administered [Unknown]
  - Product dose omission issue [Unknown]
